FAERS Safety Report 4889889-X (Version None)
Quarter: 2006Q1

REPORT INFORMATION
  Report Type: 
  Country: None (occurrence: None)
  Receive Date: 20060123
  Receipt Date: 20060123
  Transmission Date: 20060701
  Serious: Yes (Hospitalization)
  Sender: FDA-Public Use
  Company Number: None

PATIENT
  Age: 71 Year
  Sex: Female
  Weight: 132.9039 kg

DRUGS (5)
  1. TARCEVA [Suspect]
     Indication: BREAST CANCER
     Dosage: 150 MG Q PO PM
     Route: 048
  2. ZOCOR [Concomitant]
  3. AVANDIA [Concomitant]
  4. LOTENSION [Concomitant]
  5. COZAAR [Concomitant]

REACTIONS (3)
  - POST PROCEDURAL COMPLICATION [None]
  - PULMONARY EMBOLISM [None]
  - TACHYCARDIA [None]
